FAERS Safety Report 19841622 (Version 1)
Quarter: 2021Q3

REPORT INFORMATION
  Report Type: Spontaneous
  Country: PT (occurrence: PT)
  Receive Date: 20210915
  Receipt Date: 20210915
  Transmission Date: 20211014
  Serious: Yes (Hospitalization, Other)
  Sender: FDA-Public Use
  Company Number: PT-PERRIGO-21PT024782

PATIENT
  Sex: Male

DRUGS (2)
  1. DICLOFENAC [Suspect]
     Active Substance: DICLOFENAC
     Indication: FOETAL EXPOSURE DURING PREGNANCY
     Dosage: UNK, SINGLE
     Route: 064
  2. ACETAMINOPHEN. [Suspect]
     Active Substance: ACETAMINOPHEN
     Indication: FOETAL EXPOSURE DURING PREGNANCY
     Dosage: UNK
     Route: 064

REACTIONS (8)
  - Ventricular hypertrophy [Recovered/Resolved]
  - Foetal exposure during pregnancy [Recovered/Resolved]
  - Atrial septal defect [Recovered/Resolved]
  - Right-to-left cardiac shunt [Recovered/Resolved]
  - Tricuspid valve incompetence [Recovered/Resolved]
  - Pulmonary hypertension [Recovered/Resolved]
  - Ductus arteriosus premature closure [Recovered/Resolved]
  - Pulmonary valve disease [Recovered/Resolved]
